FAERS Safety Report 6748039-5 (Version None)
Quarter: 2010Q2

REPORT INFORMATION
  Report Type: 
  Country: None (occurrence: None)
  Receive Date: 20100531
  Receipt Date: 20100517
  Transmission Date: 20101027
  Serious: Yes (Other)
  Sender: FDA-Public Use
  Company Number: US-ASTRAZENECA-2009SE15970

PATIENT
  Age: 56 Year
  Sex: Male

DRUGS (4)
  1. SEROQUEL [Suspect]
     Dosage: 25 MG TO 200 MG
     Route: 048
     Dates: start: 19981019
  2. REMERON [Concomitant]
     Dates: start: 19981019
  3. ZOLOFT [Concomitant]
     Dates: start: 20070101
  4. LIPITOR [Concomitant]
     Dates: start: 20070101

REACTIONS (4)
  - DIABETES MELLITUS [None]
  - ERECTILE DYSFUNCTION [None]
  - NEUROPATHY PERIPHERAL [None]
  - TYPE 2 DIABETES MELLITUS [None]
